FAERS Safety Report 5085827-8 (Version None)
Quarter: 2006Q3

REPORT INFORMATION
  Report Type: 
  Country: None (occurrence: None)
  Receive Date: 20060822
  Receipt Date: 20060811
  Transmission Date: 20061208
  Serious: No
  Sender: FDA-Public Use
  Company Number: 2006UW16092

PATIENT
  Age: 40 Year
  Sex: Female

DRUGS (2)
  1. SEROQUEL [Suspect]
     Route: 048
     Dates: start: 20060727
  2. CLOZARIL [Concomitant]
     Dates: start: 20030701, end: 20060706

REACTIONS (1)
  - NEUTROPENIA [None]
